FAERS Safety Report 4955725-6 (Version None)
Quarter: 2006Q1

REPORT INFORMATION
  Report Type: 
  Country: None (occurrence: None)
  Receive Date: 20060328
  Receipt Date: 20060118
  Transmission Date: 20060701
  Serious: Yes (Hospitalization)
  Sender: FDA-Public Use
  Company Number: JP-ROCHE-432913

PATIENT
  Age: 44 Year
  Sex: Male
  Weight: 66 kg

DRUGS (5)
  1. TAMIFLU [Suspect]
     Route: 048
     Dates: start: 20060104, end: 20060104
  2. TAMIFLU [Suspect]
     Route: 048
     Dates: start: 20060105, end: 20060108
  3. TAMIFLU [Suspect]
     Route: 048
     Dates: start: 20060109, end: 20060109
  4. PL [Concomitant]
     Route: 048
     Dates: start: 20060103, end: 20060109
  5. BRUFEN [Concomitant]
     Route: 048
     Dates: start: 20060104, end: 20060109

REACTIONS (5)
  - ANXIETY [None]
  - DEPRESSED LEVEL OF CONSCIOUSNESS [None]
  - DEPRESSION [None]
  - HALLUCINATION [None]
  - INSOMNIA [None]
